FAERS Safety Report 4350013-3 (Version None)
Quarter: 2004Q2

REPORT INFORMATION
  Report Type: 
  Country: None (occurrence: None)
  Receive Date: 20040428
  Receipt Date: 20040428
  Transmission Date: 20050107
  Serious: Yes (Life-Threatening)
  Sender: FDA-Public Use
  Company Number: None

PATIENT
  Sex: Male

DRUGS (10)
  1. HEPARIN [Suspect]
     Indication: PROPHYLAXIS
     Dosage: 5000 UNITS Q8HR SUBCUTANEOUS
     Route: 058
     Dates: start: 20000119, end: 20040121
  2. ALLOPURINOL TAB [Concomitant]
  3. CYTARABINE [Concomitant]
  4. DEXAMETHASONE [Concomitant]
  5. HYDROCHLOROTHIAZIDE [Concomitant]
  6. HYDROCORTISONE [Concomitant]
  7. IDARUBICIN HCL [Concomitant]
  8. LISINOPRIL [Concomitant]
  9. OMEPRAZOLE [Concomitant]
  10. SODIUM BICARBONATE [Concomitant]

REACTIONS (1)
  - PLATELET COUNT DECREASED [None]
